FAERS Safety Report 9135746 (Version 1)
Quarter: 2013Q1

REPORT INFORMATION
  Report Type: Spontaneous
  Country: US (occurrence: US)
  Receive Date: 20130304
  Receipt Date: 20130304
  Transmission Date: 20140127
  Serious: No
  Sender: FDA-Public Use
  Company Number: US-TEVA-329320USA

PATIENT
  Sex: 0

DRUGS (1)
  1. SUMATRIPTAN [Suspect]
     Dosage: 200 MILLIGRAM DAILY;

REACTIONS (1)
  - Therapeutic response unexpected with drug substitution [Unknown]
